FAERS Safety Report 9601222 (Version 1)
Quarter: 2013Q4

REPORT INFORMATION
  Report Type: Other
  Country: NL (occurrence: NL)
  Receive Date: 20131005
  Receipt Date: 20131005
  Transmission Date: 20140711
  Serious: Yes (Other)
  Sender: FDA-Public Use
  Company Number: NL-BRISTOL-MYERS SQUIBB COMPANY-19524651

PATIENT
  Age: 28 Year
  Sex: Male

DRUGS (4)
  1. CISPLATIN [Suspect]
     Indication: CHORIOCARCINOMA
     Route: 042
     Dates: start: 1981
  2. BLEOMYCIN SULFATE [Suspect]
     Indication: CHORIOCARCINOMA
     Route: 042
     Dates: start: 1981
  3. ETOPOSIDE [Suspect]
     Indication: CHORIOCARCINOMA
     Route: 042
     Dates: start: 1981
  4. DOXORUBICIN [Suspect]
     Dates: start: 1981

REACTIONS (1)
  - Pulmonary embolism [Unknown]
